FAERS Safety Report 10844799 (Version 3)
Quarter: 2015Q2

REPORT INFORMATION
  Report Type: Spontaneous
  Country: US (occurrence: US)
  Receive Date: 20150220
  Receipt Date: 20150417
  Transmission Date: 20150821
  Serious: Yes (Death, Other)
  Sender: FDA-Public Use
  Company Number: US-AMGEN-USASP2015015723

PATIENT
  Age: 93 Year
  Sex: Female

DRUGS (1)
  1. PROLIA [Suspect]
     Active Substance: DENOSUMAB
     Indication: SENILE OSTEOPOROSIS
     Dosage: UNK UNK, UNK
     Route: 065

REACTIONS (5)
  - Dementia [Fatal]
  - Chronic kidney disease [Fatal]
  - Pulmonary mass [Fatal]
  - Cardio-respiratory arrest [Fatal]
  - Hypergammaglobulinaemia benign monoclonal [Fatal]
